FAERS Safety Report 8096830-8 (Version None)
Quarter: 2012Q1

REPORT INFORMATION
  Report Type: 
  Country: None (occurrence: None)
  Receive Date: 20120129
  Receipt Date: 20111205
  Transmission Date: 20120608
  Serious: No
  Sender: FDA-Public Use
  Company Number: US-ABBOTT-11P-163-0880511-00

PATIENT
  Sex: Male
  Weight: 147.55 kg

DRUGS (12)
  1. MORPHINE [Concomitant]
     Indication: PRODUCT USED FOR UNKNOWN INDICATION
  2. TIZETADINE [Concomitant]
     Indication: MUSCLE DISORDER
  3. MORPHINE [Concomitant]
  4. HYDROXYZINE [Concomitant]
     Indication: DEPRESSION
  5. HUMIRA [Suspect]
     Indication: PSORIATIC ARTHROPATHY
  6. CITALOPRAM [Concomitant]
     Indication: NERVOUS SYSTEM DISORDER
  7. CLOMAZAPAM [Concomitant]
     Indication: NERVOUS SYSTEM DISORDER
  8. PROMETHAZINE [Concomitant]
     Indication: NAUSEA
  9. ADVIR [Concomitant]
     Indication: CHRONIC OBSTRUCTIVE PULMONARY DISEASE
     Dosage: 250/50: 2 IN 1 DAYS
  10. MORPHINE [Concomitant]
  11. HUMIRA [Suspect]
     Indication: PSORIASIS
     Route: 058
  12. FUROSEMIDE [Concomitant]
     Indication: BLOOD PRESSURE

REACTIONS (2)
  - INJECTION SITE PAIN [None]
  - INJECTION SITE HAEMATOMA [None]
